FAERS Safety Report 8878959 (Version 3)
Quarter: 2013Q1

REPORT INFORMATION
  Report Type: Report from Study
  Country: US (occurrence: US)
  Receive Date: 20121030
  Receipt Date: 20130129
  Transmission Date: 20140127
  Serious: No
  Sender: FDA-Public Use
  Company Number: US-VERTEX PHARMACEUTICAL INC.-2012-023581

PATIENT
  Age: 40 None
  Sex: Male
  Weight: 93 kg

DRUGS (7)
  1. VX-950 (TELAPREVIR) [Suspect]
     Indication: HEPATITIS C
     Dosage: 750 MG, TID
     Route: 048
     Dates: start: 20121019, end: 20130118
  2. RIBAVIRIN [Suspect]
     Indication: HEPATITIS C
     Dosage: 600 MG, BID
     Dates: start: 20131019
  3. PEGASYS [Suspect]
     Indication: HEPATITIS C
     Dosage: 180 ?G, QW
  4. TRAZODONE [Concomitant]
     Dosage: 100 MG, UNK
  5. LAMICTAL ODT [Concomitant]
     Dosage: 200 MG, UNK
  6. IBUPROFEN [Concomitant]
     Dosage: 200 MG, UNK
  7. HYDROXYZINE [Concomitant]
     Dosage: 25 MG, PRN

REACTIONS (4)
  - Influenza like illness [Recovered/Resolved]
  - Eye pain [Recovered/Resolved]
  - Extraocular muscle paresis [Unknown]
  - Dry eye [Unknown]
